FAERS Safety Report 5670202-5 (Version None)
Quarter: 2008Q1

REPORT INFORMATION
  Report Type: 
  Country: None (occurrence: None)
  Receive Date: 20080312
  Receipt Date: 20080303
  Transmission Date: 20080703
  Serious: Yes (Death, Hospitalization)
  Sender: FDA-Public Use
  Company Number: 200803AGG00786

PATIENT
  Age: 81 Year
  Sex: Male
  Weight: 100 kg

DRUGS (5)
  1. TIROFIBAN HYDROCHLORIDE (TIROFIBAN HCL) [Suspect]
     Indication: ACUTE CORONARY SYNDROME
     Dosage: (DOSED BY WEIGHT FOR PTCA) INTRAVENOUS
     Route: 042
     Dates: start: 20080204, end: 20080204
  2. NITROGLYCERIN [Concomitant]
  3. ASPIRIN [Concomitant]
  4. PLAVIX [Concomitant]
  5. LOVENOX [Concomitant]

REACTIONS (4)
  - DISORIENTATION [None]
  - DISSEMINATED INTRAVASCULAR COAGULATION [None]
  - HYPOTENSION [None]
  - INTRA-ABDOMINAL HAEMORRHAGE [None]
